FAERS Safety Report 22082027 (Version 4)
Quarter: 2024Q2

REPORT INFORMATION
  Report Type: Other
  Country: US (occurrence: None)
  Receive Date: 20230310
  Receipt Date: 20240513
  Transmission Date: 20240715
  Serious: Yes (Hospitalization, Other)
  Sender: FDA-Public Use
  Company Number: US-ROCHE-3262176

PATIENT
  Age: 70 Year
  Sex: Male

DRUGS (3)
  1. PULMOZYME [Suspect]
     Active Substance: DORNASE ALFA
     Indication: Secretion discharge
     Dosage: NEBULIZE THE CONTENTS OF 1 VIAL(S) TWICE A DAY
     Route: 055
  2. PULMOZYME [Suspect]
     Active Substance: DORNASE ALFA
     Indication: Bronchiectasis
  3. PULMOZYME [Suspect]
     Active Substance: DORNASE ALFA
     Indication: Respiratory failure

REACTIONS (3)
  - Quadriplegia [Unknown]
  - Off label use [Unknown]
  - Pneumonia [Unknown]
